FAERS Safety Report 18889409 (Version 2)
Quarter: 2021Q1

REPORT INFORMATION
  Report Type: Spontaneous
  Country: US (occurrence: US)
  Receive Date: 20210213
  Receipt Date: 20210317
  Transmission Date: 20210420
  Serious: No
  Sender: FDA-Public Use
  Company Number: US-ASTRAZENECA-2021A044685

PATIENT
  Sex: Male
  Weight: 118.8 kg

DRUGS (2)
  1. BYDUREON [Suspect]
     Active Substance: EXENATIDE
     Indication: TYPE 2 DIABETES MELLITUS
     Dosage: ONCE A WEEK
     Route: 065
  2. METFORMIN GLIPIZDE [Concomitant]
     Indication: TYPE 2 DIABETES MELLITUS
     Dosage: TWO TIMES A DAY
     Route: 065

REACTIONS (3)
  - Product packaging quantity issue [Unknown]
  - Wrong technique in device usage process [Unknown]
  - Injection site mass [Unknown]
